FAERS Safety Report 17676765 (Version 7)
Quarter: 2020Q3

REPORT INFORMATION
  Report Type: Report from Study
  Country: CA (occurrence: CA)
  Receive Date: 20200416
  Receipt Date: 20200817
  Transmission Date: 20201102
  Serious: Yes (Hospitalization, Other)
  Sender: FDA-Public Use
  Company Number: CA-GLAXOSMITHKLINE-CA2020AMR063821

PATIENT
  Age: 59 Year
  Sex: Female

DRUGS (2)
  1. MEPOLIZUMAB [Suspect]
     Active Substance: MEPOLIZUMAB
     Indication: ASTHMA
     Dosage: 100 MG, Z, MONTHLY
     Dates: start: 20190426
  2. MEPOLIZUMAB [Suspect]
     Active Substance: MEPOLIZUMAB
     Dosage: 100 MG, Z,MONTHLY
     Dates: start: 20200415

REACTIONS (13)
  - Gait disturbance [Unknown]
  - Pain [Unknown]
  - Wound infection [Unknown]
  - Loss of personal independence in daily activities [Unknown]
  - Paraplegia [Unknown]
  - Spinal cord injury [Unknown]
  - Asthma [Unknown]
  - Dyspnoea [Unknown]
  - Multimorbidity [Unknown]
  - Back pain [Unknown]
  - Inappropriate schedule of product administration [Unknown]
  - Wheezing [Unknown]
  - Pneumonia [Unknown]

NARRATIVE: CASE EVENT DATE: 20200521
